FAERS Safety Report 8853410 (Version 1)
Quarter: 2012Q4

REPORT INFORMATION
  Report Type: 
  Country: US (occurrence: US)
  Receive Date: 20121022
  Receipt Date: 20121022
  Transmission Date: 20130627
  Serious: Yes (Life-Threatening, Hospitalization)
  Sender: FDA-Public Use
  Company Number: US-GLAXOSMITHKLINE-A0665821A

PATIENT
  Age: 55 Year
  Sex: Male

DRUGS (25)
  1. POTASSIUM CHLORIDE [Concomitant]
  2. SALMETEROL [Concomitant]
  3. SPIRONOLACTON [Concomitant]
  4. TRAMADOL [Concomitant]
  5. TRAZODONE [Concomitant]
  6. WARFARIN [Concomitant]
  7. AVANDIA [Suspect]
     Indication: TYPE 2 DIABETES MELLITUS
     Dosage: 8MG Per day
     Route: 048
     Dates: start: 1998, end: 20070610
  8. ALBUTEROL [Concomitant]
  9. ASPIRIN [Concomitant]
  10. ATENOLOL [Concomitant]
  11. CARBOXYMETHYLCELLULOSE [Concomitant]
  12. CHLORHEXIDINE [Concomitant]
  13. GLUCONATE [Concomitant]
  14. CITALOPRAM HYDROBROMIDE [Concomitant]
  15. CODEINE [Concomitant]
  16. CYANOCOBALAMIN [Concomitant]
  17. FERROUS SULFATE [Concomitant]
  18. FISH OIL [Concomitant]
  19. FLUVASTATIN [Concomitant]
  20. FOSINOPRIL [Concomitant]
  21. FUROSEMIDE [Concomitant]
  22. GLYBURIDE [Concomitant]
  23. IPRATROPIUM BROMIDE [Concomitant]
  24. METFORMIN HCL [Concomitant]
  25. MOMETASONE FUROATE [Concomitant]

REACTIONS (11)
  - Cardiac failure congestive [Not Recovered/Not Resolved]
  - Oedema peripheral [Unknown]
  - Sleep apnoea syndrome [Unknown]
  - Cardiac pacemaker insertion [Unknown]
  - Endotracheal intubation [Unknown]
  - Terminal state [Unknown]
  - Disability [Unknown]
  - Cardiac disorder [Unknown]
  - Testicular swelling [Unknown]
  - Abdominal distension [Unknown]
  - Local swelling [Unknown]
